FAERS Safety Report 8825966 (Version 2)
Quarter: 2012Q4

REPORT INFORMATION
  Report Type: 
  Country: PH (occurrence: PH)
  Receive Date: 20121005
  Receipt Date: 20121009
  Transmission Date: 20130627
  Serious: Yes (Hospitalization)
  Sender: FDA-Public Use
  Company Number: PH-B.I. PHARMACEUTICALS,INC./RIDGEFIELD-2012-CS-01408RP

PATIENT
  Age: 72 Year
  Sex: Male

DRUGS (4)
  1. PRADAXA [Suspect]
     Indication: CEREBROVASCULAR ACCIDENT PROPHYLAXIS
     Dosage: 220 mg
     Route: 048
     Dates: start: 201207, end: 20120918
  2. PRADAXA [Suspect]
     Indication: ATRIAL FIBRILLATION
  3. LOSARTAN [Concomitant]
     Indication: HYPERTENSION
     Dosage: 50 mg
  4. HYDROCHOLOROTHIAZIDE [Concomitant]
     Indication: HYPERTENSION
     Dosage: 25 mg

REACTIONS (3)
  - Cerebrovascular accident [Not Recovered/Not Resolved]
  - Melaena [Recovered/Resolved]
  - Haematochezia [Recovered/Resolved]
